FAERS Safety Report 11009400 (Version 2)
Quarter: 2015Q2

REPORT INFORMATION
  Report Type: Spontaneous
  Country: JP (occurrence: JP)
  Receive Date: 20150410
  Receipt Date: 20150415
  Transmission Date: 20150821
  Serious: Yes (Death, Hospitalization, Other)
  Sender: FDA-Public Use
  Company Number: PHHY2015JP038929

PATIENT
  Age: 40 Year
  Sex: Female

DRUGS (7)
  1. CISPLATIN. [Suspect]
     Active Substance: CISPLATIN
     Indication: CERVIX CARCINOMA STAGE II
     Dosage: 70 MG/M2, UNK, SIX CYCLES
     Route: 065
  2. NEDAPLATIN [Suspect]
     Active Substance: NEDAPLATIN
     Indication: CERVIX CARCINOMA STAGE II
     Dosage: 80 MG/M2, UNK, FOUR CYCLES
     Route: 065
  3. CARBOPLATIN. [Suspect]
     Active Substance: CARBOPLATIN
     Indication: CERVIX CARCINOMA STAGE II
     Dosage: 5 MG/ML, UNK
     Route: 065
  4. IRINOTECAN [Suspect]
     Active Substance: IRINOTECAN
     Indication: CERVIX CARCINOMA STAGE II
     Dosage: 160 MG/M2, UNK, ONE CYCLE
     Route: 065
  5. IRINOTECAN [Suspect]
     Active Substance: IRINOTECAN
     Dosage: 160 MG/M2, UNK,  THREE CYCLES
  6. NEDAPLATIN [Suspect]
     Active Substance: NEDAPLATIN
     Dosage: 80 MG/M2, UNK, THREE CYCLES
     Route: 065
  7. DOCETAXEL. [Suspect]
     Active Substance: DOCETAXEL
     Indication: CERVIX CARCINOMA STAGE II
     Dosage: 75 MG/M2, UNK, SEVEN CYCLES
     Route: 065

REACTIONS (9)
  - Pyrexia [Fatal]
  - Febrile neutropenia [Fatal]
  - Multi-organ failure [None]
  - Infection [Fatal]
  - Acute myeloid leukaemia [Fatal]
  - Anaemia [Fatal]
  - Haematuria [Fatal]
  - Thrombocytopenia [None]
  - Renal impairment [Fatal]
